APPROVED DRUG PRODUCT: ARMODAFINIL
Active Ingredient: ARMODAFINIL
Strength: 50MG
Dosage Form/Route: TABLET;ORAL
Application: A200043 | Product #001 | TE Code: AB
Applicant: MYLAN PHARMACEUTICALS INC
Approved: Jun 1, 2012 | RLD: No | RS: No | Type: RX